FAERS Safety Report 16303644 (Version 1)
Quarter: 2019Q2

REPORT INFORMATION
  Report Type: Other
  Country: GR (occurrence: GR)
  Receive Date: 20190513
  Receipt Date: 20190513
  Transmission Date: 20190711
  Serious: Yes (Death, Other)
  Sender: FDA-Public Use
  Company Number: GR-BIODELIVERY SCIENCES INTERNATIONAL-2019BDSI0373

PATIENT
  Age: 32 Year
  Sex: Female
  Weight: 110 kg

DRUGS (4)
  1. ROCURONIUM BROMIDE. [Concomitant]
     Active Substance: ROCURONIUM BROMIDE
     Indication: PRODUCT USED FOR UNKNOWN INDICATION
  2. MIDAZOLAM HYDROCHLORIDE. [Concomitant]
     Active Substance: MIDAZOLAM HYDROCHLORIDE
     Indication: PRODUCT USED FOR UNKNOWN INDICATION
  3. PROPOFOL. [Concomitant]
     Active Substance: PROPOFOL
     Indication: PRODUCT USED FOR UNKNOWN INDICATION
  4. FENTANYL CITRATE. [Suspect]
     Active Substance: FENTANYL CITRATE
     Indication: ANAESTHESIA
     Dosage: UNKNOWN
     Route: 065

REACTIONS (4)
  - Pulmonary embolism [Fatal]
  - PCO2 decreased [Fatal]
  - Oxygen saturation decreased [Fatal]
  - Hypotension [Fatal]
